FAERS Safety Report 5989928-9 (Version None)
Quarter: 2008Q4

REPORT INFORMATION
  Report Type: 
  Country: None (occurrence: None)
  Receive Date: 20081211
  Receipt Date: 20081202
  Transmission Date: 20090506
  Serious: Yes (Other)
  Sender: FDA-Public Use
  Company Number: NZ-RANBAXY-2008RR-19740

PATIENT
  Sex: Female

DRUGS (1)
  1. RANITIDINE [Suspect]

REACTIONS (1)
  - ANAPHYLACTOID REACTION [None]
